FAERS Safety Report 25176402 (Version 1)
Quarter: 2025Q2

REPORT INFORMATION
  Report Type: Spontaneous
  Country: FR (occurrence: FR)
  Receive Date: 20250409
  Receipt Date: 20250409
  Transmission Date: 20250717
  Serious: Yes (Other)
  Sender: SANOFI AVENTIS
  Company Number: None

PATIENT
  Age: 42 Year
  Sex: Male

DRUGS (7)
  1. ZOLPIDEM TARTRATE [Suspect]
     Active Substance: ZOLPIDEM TARTRATE
     Dosage: 10 MG, QD
     Route: 042
  2. MORPHINE SULFATE [Suspect]
     Active Substance: MORPHINE SULFATE
     Dosage: 400 MG, BID
     Route: 048
  3. METHADONE [Suspect]
     Active Substance: METHADONE HYDROCHLORIDE
     Dosage: 100 MG, BID
     Route: 048
  4. COCAINE [Suspect]
     Active Substance: COCAINE
     Route: 055
  5. COCAINE [Suspect]
     Active Substance: COCAINE
     Route: 042
  6. CANNABIS SATIVA SUBSP. INDICA TOP [Suspect]
     Active Substance: CANNABIS SATIVA SUBSP. INDICA TOP
     Dosage: 5-6 JOINTS, QD
     Route: 055
  7. KETAMINE [Suspect]
     Active Substance: KETAMINE
     Route: 045

REACTIONS (4)
  - Erysipelas [Recovering/Resolving]
  - Drug dependence [Recovering/Resolving]
  - Intentional product misuse [Unknown]
  - Injection site abscess [Recovering/Resolving]
